FAERS Safety Report 7234724-8 (Version None)
Quarter: 2011Q1

REPORT INFORMATION
  Report Type: 
  Country: None (occurrence: None)
  Receive Date: 20110120
  Receipt Date: 20110113
  Transmission Date: 20110831
  Serious: No
  Sender: FDA-Public Use
  Company Number: US-BIOGENIDEC-2011BI001762

PATIENT
  Age: 53 Year
  Sex: Female

DRUGS (1)
  1. AVONEX [Suspect]
     Indication: MULTIPLE SCLEROSIS
     Route: 030
     Dates: start: 20101118

REACTIONS (8)
  - NASOPHARYNGITIS [None]
  - CHILLS [None]
  - SINUS CONGESTION [None]
  - INFLUENZA LIKE ILLNESS [None]
  - FLUSHING [None]
  - ARTHRALGIA [None]
  - OROPHARYNGEAL PAIN [None]
  - GAIT DISTURBANCE [None]
